FAERS Safety Report 10206492 (Version 1)
Quarter: 2014Q2

REPORT INFORMATION
  Report Type: Spontaneous
  Country: CA (occurrence: None)
  Receive Date: 20140527
  Receipt Date: 20140527
  Transmission Date: 20141212
  Serious: Yes (Other)
  Sender: FDA-Public Use
  Company Number: None

PATIENT
  Age: 43 Year
  Sex: Female
  Weight: 110 kg

DRUGS (2)
  1. DEPOMEDROL [Suspect]
     Indication: ARTHRITIS
     Route: 037
     Dates: start: 20110411, end: 20110411
  2. DEPOMEDROL [Suspect]
     Indication: ARACHNOIDITIS
     Route: 037
     Dates: start: 20110411, end: 20110411

REACTIONS (2)
  - Pain [None]
  - Immobile [None]
